FAERS Safety Report 6675227-9 (Version None)
Quarter: 2010Q2

REPORT INFORMATION
  Report Type: 
  Country: None (occurrence: None)
  Receive Date: 20100409
  Receipt Date: 20100405
  Transmission Date: 20101027
  Serious: Yes (Death)
  Sender: FDA-Public Use
  Company Number: KR-CELGENEUS-090-50794-10021699

PATIENT

DRUGS (1)
  1. VIDAZA [Suspect]
     Route: 058

REACTIONS (1)
  - CEREBRAL HAEMORRHAGE [None]
